FAERS Safety Report 15409069 (Version 1)
Quarter: 2018Q3

REPORT INFORMATION
  Report Type: Spontaneous
  Country: GR (occurrence: GR)
  Receive Date: 20180920
  Receipt Date: 20180920
  Transmission Date: 20181010
  Serious: Yes (Other)
  Sender: FDA-Public Use
  Company Number: GR-BAUSCH-BL-2018-025495

PATIENT
  Age: 55 Year
  Sex: Female

DRUGS (1)
  1. TOBRAMYCIN AND DEXAMETHASONE [Suspect]
     Active Substance: DEXAMETHASONE\TOBRAMYCIN
     Indication: ADENOVIRAL CONJUNCTIVITIS
     Route: 065

REACTIONS (3)
  - Corneal opacity [Not Recovered/Not Resolved]
  - Lymphadenopathy [Unknown]
  - Varicella zoster virus infection [Recovered/Resolved]
